FAERS Safety Report 5527930-1 (Version None)
Quarter: 2007Q4

REPORT INFORMATION
  Report Type: 
  Country: None (occurrence: None)
  Receive Date: 20071123
  Receipt Date: 20071116
  Transmission Date: 20080405
  Serious: Yes (Death, Hospitalization)
  Sender: FDA-Public Use
  Company Number: SP01674

PATIENT
  Age: 73 Year
  Sex: Female

DRUGS (15)
  1. VISICOL [Suspect]
     Indication: ENDOSCOPY LARGE BOWEL
     Dosage: 45 GM, ORAL
     Route: 048
     Dates: start: 20071012, end: 20071012
  2. SODIUM PICOSULFATE [Suspect]
  3. SENNOSIDE [Suspect]
  4. DIMETICONE [Suspect]
  5. LORNOXICAM [Concomitant]
  6. SERRAPEPTASE [Concomitant]
  7. ALUMINUM HYDROXIDE/MAGNESIUM HYDROXIDE [Concomitant]
  8. TRIMEBUTINE MALEATE [Concomitant]
  9. BIFIDOBACTERIUM [Concomitant]
  10. AMLODIPINE BESYLATE [Concomitant]
  11. PROPIVERINE [Concomitant]
  12. DIAZEPAM [Concomitant]
  13. ENEMA [Concomitant]
  14. SCOPOLAMINE BUTYLBROMIDE [Concomitant]
  15. PENTAZOCINE LACTATE [Concomitant]

REACTIONS (6)
  - ABDOMINAL PAIN [None]
  - CARDIAC FAILURE ACUTE [None]
  - CARDIO-RESPIRATORY ARREST [None]
  - LARGE INTESTINE CARCINOMA [None]
  - NO THERAPEUTIC RESPONSE [None]
  - VOMITING [None]
